FAERS Safety Report 12401628 (Version 2)
Quarter: 2016Q3

REPORT INFORMATION
  Report Type: Spontaneous
  Country: IL (occurrence: IL)
  Receive Date: 20160525
  Receipt Date: 20160713
  Transmission Date: 20161109
  Serious: Yes (Hospitalization)
  Sender: FDA-Public Use
  Company Number: IL-NOVOPROD-492693

PATIENT
  Age: 49 Year
  Sex: Female

DRUGS (1)
  1. LEVEMIR [Suspect]
     Active Substance: INSULIN DETEMIR
     Indication: TYPE 1 DIABETES MELLITUS
     Dosage: 28 U, QD (INJECTS AT 21:00)
     Route: 058
     Dates: end: 20160523

REACTIONS (4)
  - Diabetes mellitus inadequate control [Recovered/Resolved]
  - Decubitus ulcer [Not Recovered/Not Resolved]
  - Knee arthroplasty [Recovering/Resolving]
  - Drug ineffective [Unknown]

NARRATIVE: CASE EVENT DATE: 201601
